FAERS Safety Report 18612641 (Version 1)
Quarter: 2020Q4

REPORT INFORMATION
  Report Type: Not Available
  Country: None (occurrence: None)
  Receive Date: 20201214
  Receipt Date: 20201214
  Transmission Date: 20210114
  Serious: Yes (Hospitalization, Other)
  Sender: FDA-Public Use
  Company Number: US-AKORN-157498

PATIENT
  Age: 15 Year
  Sex: Male
  Weight: 71 kg

DRUGS (1)
  1. MYORISAN [Suspect]
     Active Substance: ISOTRETINOIN

REACTIONS (4)
  - Intentional self-injury [None]
  - Anxiety [None]
  - Intentional overdose [Recovered/Resolved]
  - Depression [None]
